FAERS Safety Report 5044135-1 (Version None)
Quarter: 2006Q3

REPORT INFORMATION
  Report Type: 
  Country: None (occurrence: None)
  Receive Date: 20060706
  Receipt Date: 20060626
  Transmission Date: 20061208
  Serious: Yes (Hospitalization, Other)
  Sender: FDA-Public Use
  Company Number: US-JNJFOC-20060606593

PATIENT
  Sex: Female
  Weight: 72.58 kg

DRUGS (3)
  1. FENTANYL TRANSDERMAL SYSTEM [Suspect]
     Route: 062
  2. FENTANYL TRANSDERMAL SYSTEM [Suspect]
     Indication: PAIN
     Dosage: TWO-100 UG PATCHES TAKEN WITHIN 72 HOURS.
     Route: 062
  3. XANAX [Concomitant]
     Indication: ANXIETY
     Route: 048

REACTIONS (3)
  - LOWER LIMB FRACTURE [None]
  - ROAD TRAFFIC ACCIDENT [None]
  - TIBIA FRACTURE [None]
